FAERS Safety Report 25889876 (Version 1)
Quarter: 2025Q4

REPORT INFORMATION
  Report Type: Spontaneous
  Country: GB (occurrence: GB)
  Receive Date: 20251007
  Receipt Date: 20251007
  Transmission Date: 20260117
  Serious: Yes (Other)
  Sender: GALPHARM INTERNATIONAL
  Company Number: None

PATIENT
  Sex: Male

DRUGS (1)
  1. NAPROXEN [Suspect]
     Active Substance: NAPROXEN
     Indication: Product used for unknown indication
     Dosage: UNK
     Route: 065
     Dates: start: 20250701, end: 20250905

REACTIONS (5)
  - Musculoskeletal stiffness [Unknown]
  - Pruritus [Unknown]
  - Visual impairment [Unknown]
  - Headache [Unknown]
  - Abdominal pain upper [Unknown]
